FAERS Safety Report 5463551-7 (Version None)
Quarter: 2007Q3

REPORT INFORMATION
  Report Type: 
  Country: None (occurrence: None)
  Receive Date: 20070920
  Receipt Date: 20070911
  Transmission Date: 20080115
  Serious: Yes (Other)
  Sender: FDA-Public Use
  Company Number: JP-PFIZER INC-2007076645

PATIENT
  Age: 23 Year
  Sex: Male

DRUGS (4)
  1. DOXORUBICIN HCL [Suspect]
     Indication: BONE SARCOMA
  2. CISPLATIN [Suspect]
     Indication: BONE SARCOMA
  3. METHOTREXATE [Suspect]
     Indication: BONE SARCOMA
     Dosage: TEXT:10 G/M2
  4. IFOSFAMIDE [Suspect]
     Indication: BONE SARCOMA
     Dosage: TEXT:10 G/M2

REACTIONS (2)
  - NEOPLASM MALIGNANT [None]
  - SYNOVIAL SARCOMA [None]
